FAERS Safety Report 22641232 (Version 1)
Quarter: 2023Q2

REPORT INFORMATION
  Report Type: Spontaneous
  Country: CN (occurrence: CN)
  Receive Date: 20230626
  Receipt Date: 20230626
  Transmission Date: 20230721
  Serious: Yes (Life-Threatening, Hospitalization, Other)
  Sender: FDA-Public Use
  Company Number: CN-MLMSERVICE-20230615-4352174-1

PATIENT
  Age: 52 Year
  Sex: Female

DRUGS (6)
  1. OLANZAPINE [Suspect]
     Active Substance: OLANZAPINE
     Indication: Schizophrenia
     Dosage: UNK, UNKNOWN
     Route: 065
     Dates: start: 2019, end: 202002
  2. OLANZAPINE [Suspect]
     Active Substance: OLANZAPINE
     Dosage: EVERY NIGHT
     Route: 065
     Dates: end: 2019
  3. HALOPERIDOL [Suspect]
     Active Substance: HALOPERIDOL
     Indication: Schizophrenia
     Dosage: 10 MG, UNKNOWN
     Route: 030
     Dates: start: 20200127, end: 202002
  4. RISPERIDONE [Suspect]
     Active Substance: RISPERIDONE
     Indication: Schizophrenia
     Dates: start: 202001, end: 202002
  5. RISPERIDONE [Suspect]
     Active Substance: RISPERIDONE
     Dosage: REDUCED THE MEDICATION
     Route: 065
     Dates: start: 2019
  6. RISPERIDONE [Suspect]
     Active Substance: RISPERIDONE
     Dosage: 2 MG, DAILY
     Route: 065
     Dates: end: 2019

REACTIONS (6)
  - Respiratory failure [Recovered/Resolved]
  - Respiratory alkalosis [Recovered/Resolved]
  - Neuroleptic malignant syndrome [Recovered/Resolved]
  - Staphylococcal infection [Recovered/Resolved]
  - Pneumonia [Recovered/Resolved]
  - Rhabdomyolysis [Recovered/Resolved]

NARRATIVE: CASE EVENT DATE: 20200129
